FAERS Safety Report 6832050-X (Version None)
Quarter: 2010Q3

REPORT INFORMATION
  Report Type: 
  Country: None (occurrence: None)
  Receive Date: 20100706
  Receipt Date: 20100624
  Transmission Date: 20110219
  Serious: Yes (Hospitalization)
  Sender: FDA-Public Use
  Company Number: 2010SP033140

PATIENT
  Age: 45 Year
  Sex: Female

DRUGS (3)
  1. PEG-INTRON [Suspect]
     Indication: HEPATITIS C
     Dosage: 1 DF, QW; SC, 90 MCG,QW, SC
     Route: 058
     Dates: start: 20091105, end: 20100320
  2. PEG-INTRON [Suspect]
     Indication: HEPATITIS C
     Dosage: 1 DF, QW; SC, 90 MCG,QW, SC
     Route: 058
     Dates: start: 20100320, end: 20100328
  3. COPEGUS [Suspect]
     Indication: HEPATITIS C
     Dosage: 800 MG, QD; PO
     Route: 048
     Dates: start: 20091105, end: 20100328

REACTIONS (3)
  - AGITATION [None]
  - ANXIETY [None]
  - RESTLESSNESS [None]
